FAERS Safety Report 5146327-X (Version None)
Quarter: 2006Q4

REPORT INFORMATION
  Report Type: 
  Country: None (occurrence: None)
  Receive Date: 20061102
  Receipt Date: 20061020
  Transmission Date: 20070319
  Serious: Yes (Other)
  Sender: FDA-Public Use
  Company Number: 2006129584

PATIENT
  Age: 20 Year
  Sex: Female

DRUGS (3)
  1. NEURONTIN [Suspect]
     Indication: CONVULSION
     Dosage: 600 MG (200 MG, 3 IN 1 D)
  2. DEPAKOTE [Concomitant]
  3. VITAMINS [Concomitant]

REACTIONS (1)
  - RETINAL PIGMENTATION [None]
